FAERS Safety Report 5479763-2 (Version None)
Quarter: 2007Q4

REPORT INFORMATION
  Report Type: 
  Country: None (occurrence: None)
  Receive Date: 20071008
  Receipt Date: 20070928
  Transmission Date: 20080405
  Serious: Yes (Death, Other)
  Sender: FDA-Public Use
  Company Number: US-SHR-US-2007-006366

PATIENT
  Age: 71 Year
  Sex: Male
  Weight: 81.633 kg

DRUGS (20)
  1. MAGNEVIST [Suspect]
     Indication: ANGIOGRAM
     Dosage: 60 ML, 1 DOSE
     Route: 042
     Dates: start: 20021126, end: 20021126
  2. MAGNEVIST [Suspect]
     Dosage: 20 ML, 1 DOSE
     Route: 042
     Dates: start: 20030408, end: 20030408
  3. MAGNEVIST [Suspect]
     Dosage: 20 ML, 1 DOSE
     Route: 042
     Dates: start: 20040113, end: 20040113
  4. ANTINEOPLASTIC AGENTS [Concomitant]
     Indication: BLADDER CANCER
     Dates: start: 20060101
  5. EPOGEN [Concomitant]
     Dosage: 10,000 UNITS Q WEEK
     Route: 058
  6. IBUPROFEN [Concomitant]
     Indication: PAIN
     Dosage: 400 MG, AS REQ'D
     Route: 048
  7. FERROUS SULFATE TAB [Concomitant]
     Dosage: 325 UNK, 1X/DAY
     Route: 048
  8. VITAMIN CAP [Concomitant]
     Route: 048
  9. TOCOPHEROL CONCENTRATE CAP [Concomitant]
     Dosage: 800 IU, 1X/DAY
     Route: 048
  10. CALCITRIOL [Concomitant]
     Dosage: .25 A?G, MWF
     Route: 048
  11. SEVELAMER [Concomitant]
     Dosage: 800 MG, 3X/DAY
     Route: 048
  12. CALCIUM ACETATE [Concomitant]
     Dosage: 667 MG, 3X/DAY
     Route: 048
  13. SODIUM BICARBONATE [Concomitant]
     Dosage: 650 MG, 3X/DAY
  14. ALENDRONATE SODIUM [Concomitant]
     Dosage: 35 MG, 1X/WEEK
  15. EZETIMIBE [Concomitant]
     Dosage: 10 MG, 1X/DAY
  16. FUROSEMIDE [Concomitant]
     Dosage: 40 MG, 1X/DAY
  17. DOXAZOSIN MESYLATE [Concomitant]
     Dosage: 6 MG, 1X/DAY
  18. LISINOPRIL [Concomitant]
     Indication: HYPERTENSION
     Dosage: 5 MG, 1X/DAY
  19. AMIODARONE [Concomitant]
     Dosage: 200 MG, 1X/DAY
     Route: 048
  20. COUMADIN [Concomitant]
     Dosage: 1.5 MG, 1X/DAY
     Route: 048

REACTIONS (2)
  - BLADDER CANCER [None]
  - NEPHROGENIC SYSTEMIC FIBROSIS [None]
